FAERS Safety Report 16648923 (Version 1)
Quarter: 2019Q3

REPORT INFORMATION
  Report Type: Spontaneous
  Country: US (occurrence: US)
  Receive Date: 20190730
  Receipt Date: 20190730
  Transmission Date: 20191004
  Serious: Yes (Death)
  Sender: FDA-Public Use
  Company Number: PHEH2019US031552

PATIENT
  Age: 53 Year
  Sex: Female

DRUGS (1)
  1. TYKERB [Suspect]
     Active Substance: LAPATINIB DITOSYLATE
     Indication: BREAST NEOPLASM
     Dosage: 1250 MG, QD
     Route: 048
     Dates: start: 20180713

REACTIONS (1)
  - Death [Fatal]

NARRATIVE: CASE EVENT DATE: 20190718
